FAERS Safety Report 15305736 (Version 2)
Quarter: 2019Q1

REPORT INFORMATION
  Report Type: Report from Study
  Country: US (occurrence: US)
  Receive Date: 20180822
  Receipt Date: 20190321
  Transmission Date: 20190417
  Serious: Yes (Hospitalization)
  Sender: FDA-Public Use
  Company Number: US-ROCHE-2170327

PATIENT
  Sex: Female
  Weight: 86.26 kg

DRUGS (2)
  1. OCREVUS [Suspect]
     Active Substance: OCRELIZUMAB
     Indication: MULTIPLE SCLEROSIS
     Dosage: AROUND MAY OR JUNE IN 2017
     Route: 042
     Dates: start: 2017
  2. OCREVUS [Suspect]
     Active Substance: OCRELIZUMAB
     Indication: PROGRESSIVE MULTIPLE SCLEROSIS

REACTIONS (5)
  - Multiple sclerosis [Unknown]
  - Kidney infection [Unknown]
  - Muscular weakness [Unknown]
  - Therapy non-responder [Unknown]
  - Urinary tract infection [Unknown]
